FAERS Safety Report 20318823 (Version 3)
Quarter: 2022Q4

REPORT INFORMATION
  Report Type: Spontaneous
  Country: US (occurrence: US)
  Receive Date: 20220110
  Receipt Date: 20221031
  Transmission Date: 20230113
  Serious: Yes (Other)
  Sender: FDA-Public Use
  Company Number: US-PFIZER INC-2021593243

PATIENT
  Age: 64 Year
  Sex: Female

DRUGS (5)
  1. IBRANCE [Suspect]
     Active Substance: PALBOCICLIB
     Indication: Breast cancer metastatic
     Dosage: 125 MG, CYCLIC (ONCE A DAY FOR 21 DAYS, THEN ON 7 DAYS BREAK)
     Dates: start: 20190801
  2. FASLODEX [Suspect]
     Active Substance: FULVESTRANT
     Dosage: UNK (XGEVA AT THE SAME TIME AS FASLODEX EVERY 28 DAYS)
     Dates: start: 201908
  3. XGEVA [Suspect]
     Active Substance: DENOSUMAB
     Indication: Bone disorder
     Dosage: UNK
     Route: 058
     Dates: start: 201908
  4. XGEVA [Suspect]
     Active Substance: DENOSUMAB
     Dosage: UNK
     Route: 058
     Dates: start: 202106
  5. XGEVA [Suspect]
     Active Substance: DENOSUMAB
     Dosage: UNK (XGEVA AT THE SAME TIME AS FASLODEX EVERY 28 DAYS)
     Route: 058
     Dates: start: 20220405

REACTIONS (15)
  - COVID-19 [Recovering/Resolving]
  - Rib fracture [Unknown]
  - Pain [Recovered/Resolved]
  - Neoplasm progression [Not Recovered/Not Resolved]
  - Pain in extremity [Unknown]
  - Dysphonia [Unknown]
  - Cough [Unknown]
  - Taste disorder [Recovered/Resolved]
  - Onychoclasis [Unknown]
  - Nail growth abnormal [Unknown]
  - Infection [Unknown]
  - Tooth disorder [Unknown]
  - Tooth extraction [Unknown]
  - Exostosis [Not Recovered/Not Resolved]
  - Blood pressure abnormal [Unknown]

NARRATIVE: CASE EVENT DATE: 20210521
